FAERS Safety Report 5835351-7 (Version None)
Quarter: 2008Q3

REPORT INFORMATION
  Report Type: 
  Country: None (occurrence: None)
  Receive Date: 20080731
  Receipt Date: 20080724
  Transmission Date: 20090109
  Serious: Yes (Other)
  Sender: FDA-Public Use
  Company Number: CHPA2008US12648

PATIENT
  Age: 58 Year
  Sex: Female

DRUGS (3)
  1. EX-LAX REG STR CHOCOLATED LAX PCS SEN (NCH)(SENNA [Suspect]
     Indication: CONSTIPATION
     Dosage: 30 MG, ONCE/SINGLE, ORAL
     Route: 048
     Dates: start: 20080723, end: 20080723
  2. NORVASC [Concomitant]
  3. UNISOM [Concomitant]

REACTIONS (5)
  - ABDOMINAL PAIN UPPER [None]
  - DIZZINESS [None]
  - FALL [None]
  - MEMORY IMPAIRMENT [None]
  - SYNCOPE [None]
